FAERS Safety Report 5082170-8 (Version None)
Quarter: 2006Q3

REPORT INFORMATION
  Report Type: 
  Country: None (occurrence: None)
  Receive Date: 20060815
  Receipt Date: 20060815
  Transmission Date: 20061208
  Serious: Yes (Other)
  Sender: FDA-Public Use
  Company Number: None

PATIENT
  Sex: Female
  Weight: 54.5 kg

DRUGS (20)
  1. MORPHINE [Suspect]
     Indication: PROCEDURAL PAIN
     Dosage: 30MG/ML  PCA IV
     Route: 042
     Dates: start: 20060711, end: 20060712
  2. PHENERGAN HCL [Suspect]
     Indication: NAUSEA
     Dosage: 6.25MG Q 4 HOURS IV
     Route: 042
     Dates: start: 20060712, end: 20060712
  3. BISACODYL [Concomitant]
  4. HUMULIN R [Concomitant]
  5. CEFAZOLIN [Concomitant]
  6. FAMOTIDINE [Concomitant]
  7. DOCUSATE SODIUM [Concomitant]
  8. LEVOFLOXACIN [Concomitant]
  9. POTASSIUM CHLORIDE [Concomitant]
  10. WARFARIN SODIUM [Concomitant]
  11. DOLASETRON [Concomitant]
  12. NALOXINE [Concomitant]
  13. ATENOLOL [Concomitant]
  14. HYDROCHLOROTHIAZIDE [Concomitant]
  15. MULTI-VITAMIN [Concomitant]
  16. ATENOLOL [Concomitant]
  17. PERCOCET BISACODYL [Concomitant]
  18. CEFAZOLIN [Concomitant]
  19. DIPHENHYDRAMINE [Concomitant]
  20. POTASSIUM CHLORIDE [Concomitant]

REACTIONS (4)
  - LOSS OF CONSCIOUSNESS [None]
  - NAUSEA [None]
  - OXYGEN SATURATION DECREASED [None]
  - RESPIRATORY DEPRESSION [None]
